FAERS Safety Report 4598814-0 (Version None)
Quarter: 2005Q1

REPORT INFORMATION
  Report Type: 
  Country: None (occurrence: None)
  Receive Date: 20050301
  Receipt Date: 20050216
  Transmission Date: 20050727
  Serious: Yes (Other)
  Sender: FDA-Public Use
  Company Number: 2005032613

PATIENT
  Age: 49 Year
  Sex: Female
  Weight: 79.3795 kg

DRUGS (1)
  1. NEURONTIN [Suspect]
     Indication: NEUROPATHIC PAIN
     Dosage: 300 MG (100 MG, 3 IN 1 D), ORAL
     Route: 048

REACTIONS (3)
  - DEAFNESS UNILATERAL [None]
  - VERTIGO [None]
  - VIRAL LABYRINTHITIS [None]
